FAERS Safety Report 26038973 (Version 2)
Quarter: 2025Q4

REPORT INFORMATION
  Report Type: Report from Study
  Country: CA (occurrence: CA)
  Receive Date: 20251113
  Receipt Date: 20251209
  Transmission Date: 20260117
  Serious: Yes (Other)
  Sender: CELLTRION
  Company Number: CA-CELLTRION INC.-2025CA023059

PATIENT

DRUGS (2)
  1. USTEKINUMAB [Suspect]
     Active Substance: USTEKINUMAB
     Indication: Psoriasis
     Dosage: 90 MG, Q12 WEEKS, JULY 15
     Route: 058
     Dates: start: 20250715
  2. USTEKINUMAB [Suspect]
     Active Substance: USTEKINUMAB
     Dosage: Q12 WEEKS
     Route: 058
     Dates: start: 20251104

REACTIONS (5)
  - Cataract [Unknown]
  - Frequent bowel movements [Unknown]
  - Malaise [Unknown]
  - Diarrhoea [Unknown]
  - Intentional dose omission [Unknown]
